FAERS Safety Report 14304164 (Version 1)
Quarter: 2017Q4

REPORT INFORMATION
  Report Type: Report from Study
  Country: JP (occurrence: JP)
  Receive Date: 20171219
  Receipt Date: 20171219
  Transmission Date: 20180321
  Serious: Yes (Hospitalization)
  Sender: FDA-Public Use
  Company Number: JP-OTSUKA-JP-2014-11934

PATIENT
  Age: 86 Year
  Sex: Female

DRUGS (6)
  1. EVAMYL [Concomitant]
     Active Substance: LORMETAZEPAM
     Indication: BIPOLAR DISORDER
     Dosage: 1 MG, QD
     Route: 048
     Dates: start: 20130810, end: 20140322
  2. ARIPIPRAZOLE. [Suspect]
     Active Substance: ARIPIPRAZOLE
     Indication: BIPOLAR DISORDER
     Dosage: 18 MG, QD
     Route: 048
     Dates: start: 20131012, end: 20131115
  3. ARIPIPRAZOLE. [Suspect]
     Active Substance: ARIPIPRAZOLE
     Indication: BIPOLAR DISORDER
     Dosage: 24 MG, QD
     Route: 048
     Dates: start: 20130810, end: 20131011
  4. MAGMITT [Concomitant]
     Active Substance: MAGNESIUM OXIDE
     Indication: CONSTIPATION
     Dosage: 660 MG, QD
     Route: 048
     Dates: start: 20130810, end: 20140322
  5. MAGMITT [Concomitant]
     Active Substance: MAGNESIUM OXIDE
     Indication: PROPHYLAXIS
  6. ARIPIPRAZOLE. [Suspect]
     Active Substance: ARIPIPRAZOLE
     Dosage: 12 MG, QD
     Route: 048
     Dates: start: 20131116, end: 20140322

REACTIONS (4)
  - Parkinsonian gait [Recovered/Resolved]
  - Gait inability [Recovered/Resolved]
  - Dehydration [Unknown]
  - Depressive symptom [Recovered/Resolved]

NARRATIVE: CASE EVENT DATE: 20131001
